FAERS Safety Report 14665131 (Version 1)
Quarter: 2018Q1

REPORT INFORMATION
  Report Type: Spontaneous
  Country: US (occurrence: US)
  Receive Date: 20180319
  Receipt Date: 20180319
  Transmission Date: 20180509
  Serious: Yes (Other)
  Sender: FDA-Public Use
  Company Number: None

PATIENT
  Age: 22 Year
  Sex: Female
  Weight: 73.8 kg

DRUGS (4)
  1. MULTIVITAMIN [Concomitant]
     Active Substance: VITAMINS
  2. NUVARING [Suspect]
     Active Substance: ETHINYL ESTRADIOL\ETONOGESTREL
     Indication: ACNE
     Dosage: ?          QUANTITY:1 VAGINAL INSERTION;OTHER FREQUENCY:21 DAYS INSIDE;?
     Route: 067
     Dates: start: 20150101, end: 20160101
  3. NUVARING [Suspect]
     Active Substance: ETHINYL ESTRADIOL\ETONOGESTREL
     Indication: CONTRACEPTION
     Dosage: ?          QUANTITY:1 VAGINAL INSERTION;OTHER FREQUENCY:21 DAYS INSIDE;?
     Route: 067
     Dates: start: 20150101, end: 20160101
  4. VITAMIN B12 [Concomitant]
     Active Substance: CYANOCOBALAMIN

REACTIONS (3)
  - Tonsillar inflammation [None]
  - Sinusitis [None]
  - Nasopharyngitis [None]

NARRATIVE: CASE EVENT DATE: 20160518
